FAERS Safety Report 9575980 (Version 1)
Quarter: 2013Q4

REPORT INFORMATION
  Report Type: Spontaneous
  Country: US (occurrence: US)
  Receive Date: 20131001
  Receipt Date: 20131001
  Transmission Date: 20140711
  Serious: No
  Sender: FDA-Public Use
  Company Number: US-AMGEN-USASP2013000535

PATIENT
  Age: 51 Year
  Sex: Female
  Weight: 81.63 kg

DRUGS (10)
  1. ENBREL [Suspect]
     Indication: PSORIASIS
     Dosage: 50 MG, QWK
  2. ENBREL [Suspect]
     Indication: PSORIATIC ARTHROPATHY
  3. ACIPHEX [Concomitant]
     Dosage: 20 MG, UNK
  4. ATENOLOL [Concomitant]
     Dosage: 25 MG, UNK
  5. CYMBALTA [Concomitant]
     Dosage: 20 MG, UNK
  6. VITAMIN B 6 [Concomitant]
     Dosage: 50 MG, UNK
  7. CALCIUM [Concomitant]
     Dosage: 500 MG, UNK
  8. FOLIC ACID [Concomitant]
     Dosage: 1 MG, UNK
  9. ASPIRIN LOW [Concomitant]
     Dosage: 81 MG, UNK
  10. METHOTREXATE [Concomitant]
     Dosage: UNK

REACTIONS (3)
  - Wrong technique in drug usage process [Recovered/Resolved]
  - Injection site erythema [Recovered/Resolved]
  - Injection site pain [Recovered/Resolved]
